FAERS Safety Report 20152700 (Version 1)
Quarter: 2021Q4

REPORT INFORMATION
  Report Type: Report from Study
  Country: US (occurrence: US)
  Receive Date: 20211206
  Receipt Date: 20211206
  Transmission Date: 20220303
  Serious: Yes (Hospitalization, Other)
  Sender: FDA-Public Use
  Company Number: US-TAKEDA-2021TUS077104

PATIENT
  Sex: Male

DRUGS (4)
  1. TEDUGLUTIDE [Suspect]
     Active Substance: TEDUGLUTIDE
     Indication: Short-bowel syndrome
     Dosage: 0.325 MILLILITRE PER KILOGRAM
     Route: 050
     Dates: start: 20211105
  2. TEDUGLUTIDE [Suspect]
     Active Substance: TEDUGLUTIDE
     Indication: Short-bowel syndrome
     Dosage: 0.325 MILLILITRE PER KILOGRAM
     Route: 050
     Dates: start: 20211105
  3. TEDUGLUTIDE [Suspect]
     Active Substance: TEDUGLUTIDE
     Indication: Short-bowel syndrome
     Dosage: 0.325 MILLILITRE PER KILOGRAM
     Route: 050
     Dates: start: 20211105
  4. TEDUGLUTIDE [Suspect]
     Active Substance: TEDUGLUTIDE
     Indication: Short-bowel syndrome
     Dosage: 0.325 MILLILITRE PER KILOGRAM
     Route: 050
     Dates: start: 20211105

REACTIONS (2)
  - Intestinal obstruction [Recovering/Resolving]
  - Therapy cessation [Not Recovered/Not Resolved]
